FAERS Safety Report 4790293-3 (Version None)
Quarter: 2005Q4

REPORT INFORMATION
  Report Type: 
  Country: None (occurrence: None)
  Receive Date: 20051005
  Receipt Date: 20051005
  Transmission Date: 20060501
  Serious: Yes (Life-Threatening, Hospitalization)
  Sender: FDA-Public Use
  Company Number: None

PATIENT
  Age: 53 Year
  Sex: Male
  Weight: 94 kg

DRUGS (10)
  1. PHENYTOIN [Suspect]
     Indication: STATUS EPILEPTICUS
     Dosage: 100MG IV Q 6 H
     Route: 042
     Dates: start: 20040712, end: 20040719
  2. VALPROIC ACID [Suspect]
     Dosage: 500MG IV Q 8 -} 1250 IV Q 8
     Route: 042
     Dates: start: 20040712, end: 20040723
  3. VALPROIC ACID [Concomitant]
  4. VANCOMYCIN [Concomitant]
  5. AMPICILLIN [Concomitant]
  6. DOPAMINE [Concomitant]
  7. ACYCLOVIR [Concomitant]
  8. CEFTRIAXONE [Concomitant]
  9. LEVETIRACETAM [Concomitant]
  10. NOREPINEPHRINE [Concomitant]

REACTIONS (4)
  - BLOOD ALBUMIN DECREASED [None]
  - CONDITION AGGRAVATED [None]
  - GRAND MAL CONVULSION [None]
  - RENAL FAILURE ACUTE [None]
